FAERS Safety Report 24115736 (Version 1)
Quarter: 2024Q3

REPORT INFORMATION
  Report Type: Spontaneous
  Country: US (occurrence: US)
  Receive Date: 20240721
  Receipt Date: 20240721
  Transmission Date: 20241017
  Serious: Yes (Hospitalization, Other)
  Sender: DR REDDYS
  Company Number: US-DRL-USA-LIT/USA/24/0010377

PATIENT
  Age: 33 Year
  Sex: Female

DRUGS (6)
  1. CYCLOPHOSPHAMIDE [Suspect]
     Active Substance: CYCLOPHOSPHAMIDE
     Indication: Choriocarcinoma
     Dosage: FULL-DOSE EMA-CO FOR 1 CYCLE
  2. ETOPOSIDE [Suspect]
     Active Substance: ETOPOSIDE
     Indication: Choriocarcinoma
     Dosage: FULL-DOSE EMA-CO FOR 1 CYCLE
  3. METHOTREXATE [Suspect]
     Active Substance: METHOTREXATE
     Indication: Choriocarcinoma
     Dosage: FULL-DOSE EMA-CO FOR 1 CYCLE
  4. ACTINOMYCIN D [Suspect]
     Active Substance: DACTINOMYCIN
     Indication: Choriocarcinoma
     Dosage: FULL-DOSE EMA-CO FOR 1 CYCLE
  5. VINCRISTINE [Suspect]
     Active Substance: VINCRISTINE
     Indication: Choriocarcinoma
     Dosage: FULL-DOSE EMA-CO FOR 1 CYCLE
  6. CISPLATIN [Suspect]
     Active Substance: CISPLATIN
     Indication: Choriocarcinoma
     Dosage: 2 CYCLES OF EP

REACTIONS (6)
  - Pneumothorax [Unknown]
  - Pulmonary fibrosis [Unknown]
  - Musculoskeletal stiffness [Unknown]
  - Cystic lung disease [Unknown]
  - Pulmonary toxicity [Unknown]
  - Product use in unapproved indication [Unknown]
